FAERS Safety Report 8380504-X (Version None)
Quarter: 2012Q2

REPORT INFORMATION
  Report Type: 
  Country: None (occurrence: None)
  Receive Date: 20120523
  Receipt Date: 20120516
  Transmission Date: 20120825
  Serious: Yes (Hospitalization)
  Sender: FDA-Public Use
  Company Number: NO-GLAXOSMITHKLINE-B0802765A

PATIENT
  Sex: Female

DRUGS (1)
  1. RETIGABINE [Suspect]
     Indication: PRODUCT USED FOR UNKNOWN INDICATION
     Route: 065
     Dates: start: 20120420

REACTIONS (4)
  - PYREXIA [None]
  - LEUKOCYTOCLASTIC VASCULITIS [None]
  - HYPOTENSION [None]
  - RASH [None]
